FAERS Safety Report 5831198-6 (Version None)
Quarter: 2008Q3

REPORT INFORMATION
  Report Type: 
  Country: None (occurrence: None)
  Receive Date: 20080801
  Receipt Date: 20080523
  Transmission Date: 20090109
  Serious: Yes (Death, Hospitalization)
  Sender: FDA-Public Use
  Company Number: US-BRISTOL-MYERS SQUIBB COMPANY-14203574

PATIENT
  Sex: Female

DRUGS (6)
  1. COUMADIN [Suspect]
     Indication: ATRIAL FIBRILLATION
  2. COUMADIN [Suspect]
     Indication: THROMBOSIS
  3. PLAVIX [Suspect]
     Indication: ATRIAL FIBRILLATION
  4. PLAVIX [Suspect]
     Indication: THROMBOSIS
  5. ASPIRIN [Suspect]
     Indication: ATRIAL FIBRILLATION
  6. ASPIRIN [Suspect]
     Indication: THROMBOSIS

REACTIONS (2)
  - HAEMATOCRIT DECREASED [None]
  - HAEMORRHAGE [None]
